FAERS Safety Report 5749699-8 (Version None)
Quarter: 2008Q2

REPORT INFORMATION
  Report Type: 
  Country: None (occurrence: None)
  Receive Date: 20080527
  Receipt Date: 20080519
  Transmission Date: 20081010
  Serious: Yes (Hospitalization)
  Sender: FDA-Public Use
  Company Number: US-ASTRAZENECA-2008AC01310

PATIENT
  Age: 88 Year
  Sex: Male

DRUGS (6)
  1. ATENOLOL [Suspect]
  2. LASIX [Suspect]
     Indication: CARDIAC FAILURE
  3. ZOCOR [Concomitant]
  4. COUMADIN [Concomitant]
  5. IRON [Concomitant]
  6. ASCORBIC ACID [Concomitant]

REACTIONS (1)
  - LEUKOCYTOCLASTIC VASCULITIS [None]
